FAERS Safety Report 17942337 (Version 1)
Quarter: 2020Q2

REPORT INFORMATION
  Report Type: Spontaneous
  Country: US (occurrence: US)
  Receive Date: 20200625
  Receipt Date: 20200625
  Transmission Date: 20200714
  Serious: No
  Sender: FDA-Public Use
  Company Number: US-ASTRAZENECA-2020SE79870

PATIENT
  Age: 741 Month
  Sex: Female
  Weight: 65.8 kg

DRUGS (3)
  1. LYNPARZA [Suspect]
     Active Substance: OLAPARIB
     Indication: OVARIAN CANCER STAGE IV
     Route: 048
     Dates: start: 20200217
  2. VALACYCLOVIR [Concomitant]
     Active Substance: VALACYCLOVIR HYDROCHLORIDE
     Indication: HERPES ZOSTER
     Route: 048
  3. PREDNISONE. [Concomitant]
     Active Substance: PREDNISONE
     Dates: start: 20200429

REACTIONS (9)
  - Infection [Recovered/Resolved]
  - Lip pain [Not Recovered/Not Resolved]
  - Photosensitivity reaction [Recovering/Resolving]
  - Chapped lips [Recovered/Resolved]
  - Sleep disorder [Recovering/Resolving]
  - Lip swelling [Recovered/Resolved]
  - Herpes zoster [Not Recovered/Not Resolved]
  - Lip pruritus [Recovered/Resolved]
  - Intraocular pressure increased [Unknown]

NARRATIVE: CASE EVENT DATE: 202004
